FAERS Safety Report 25874507 (Version 2)
Quarter: 2025Q4

REPORT INFORMATION
  Report Type: Spontaneous
  Country: US (occurrence: US)
  Receive Date: 20251002
  Receipt Date: 20251006
  Transmission Date: 20260118
  Serious: No
  Sender: PFIZER
  Company Number: US-PFIZER INC-202500194831

PATIENT
  Age: 42 Year
  Sex: Female

DRUGS (2)
  1. XALKORI [Suspect]
     Active Substance: CRIZOTINIB
     Dosage: 250 MG (60 CAPSULES 30DAYS)
     Dates: start: 20250729, end: 20250821
  2. XALKORI [Suspect]
     Active Substance: CRIZOTINIB
     Dosage: 200 MG (60 CAPSULES 30DAYS)
     Dates: start: 20250825, end: 20250903

REACTIONS (6)
  - Eye inflammation [Unknown]
  - Visual impairment [Unknown]
  - Diplopia [Unknown]
  - Fatigue [Unknown]
  - Decreased appetite [Unknown]
  - Product dose omission issue [Unknown]

NARRATIVE: CASE EVENT DATE: 20250729
